FAERS Safety Report 9117768 (Version 2)
Quarter: 2013Q2

REPORT INFORMATION
  Report Type: Spontaneous
  Country: BR (occurrence: BR)
  Receive Date: 20130208
  Receipt Date: 20130528
  Transmission Date: 20140414
  Serious: Yes (Other)
  Sender: FDA-Public Use
  Company Number: BR-AMGEN-BRASP2013008144

PATIENT
  Age: 52 Year
  Sex: Female
  Weight: 70 kg

DRUGS (11)
  1. ENBREL [Suspect]
     Indication: RHEUMATOID ARTHRITIS
     Dosage: 50 MG, WEEKLY
     Route: 058
     Dates: start: 201206
  2. METHOTREXATE [Concomitant]
     Dosage: 8 TABLETS, WEEKLY
  3. RIVOTRIL [Concomitant]
     Dosage: 1 TABLET OF 2 MG, 1X/DAY
  4. LOSARTAN [Concomitant]
     Dosage: 50 MG, 1X/DAY
  5. CHLOROTHIAZIDE [Concomitant]
     Dosage: 12.5 MG, 1X/DAY
  6. AAS [Concomitant]
     Dosage: 1 TABLET AFTER LUNCH
  7. OMEPRAZOL                          /00661201/ [Concomitant]
     Dosage: 1 TABLET DAILY
  8. FLUOXETINE [Concomitant]
     Dosage: 40 MG, UNK
  9. DORFLEX [Concomitant]
     Indication: PAIN
     Dosage: UNSPECIFIED DOSE, IF PAIN
  10. NIMESULIDE [Concomitant]
     Indication: PAIN
     Dosage: 100 MG, AS NEEDED
  11. MIRTAX                             /00428402/ [Concomitant]
     Indication: FIBROMYALGIA
     Dosage: 10 MG, DAILY

REACTIONS (7)
  - Cardiac arrest [Unknown]
  - Bundle branch block left [Unknown]
  - Bundle branch block right [Unknown]
  - Pain [Unknown]
  - Oxygen saturation decreased [Unknown]
  - Arterial occlusive disease [Unknown]
  - Syncope [Unknown]
